FAERS Safety Report 8194409-0 (Version None)
Quarter: 2012Q1

REPORT INFORMATION
  Report Type: 
  Country: None (occurrence: None)
  Receive Date: 20120308
  Receipt Date: 20120224
  Transmission Date: 20120608
  Serious: Yes (Death)
  Sender: FDA-Public Use
  Company Number: CA-BAYER-2012-022318

PATIENT
  Age: 62 Year
  Sex: Male

DRUGS (8)
  1. THIOPENTAL SODIUM [Concomitant]
  2. LASIX [Concomitant]
  3. MANNITOL [Concomitant]
  4. SOLU-MEDROL [Concomitant]
  5. TRASYLOL [Suspect]
     Dosage: UNK
     Dates: start: 20041124, end: 20041124
  6. VASOPRESSIN [Concomitant]
  7. XYLOCAINE [Concomitant]
  8. LEVO [Concomitant]

REACTIONS (2)
  - POST PROCEDURAL HAEMORRHAGE [None]
  - ENDOCARDITIS [None]
